FAERS Safety Report 16546991 (Version 1)
Quarter: 2019Q3

REPORT INFORMATION
  Report Type: Spontaneous
  Country: GB (occurrence: GB)
  Receive Date: 20190709
  Receipt Date: 20190709
  Transmission Date: 20191004
  Serious: Yes (Disabling)
  Sender: FDA-Public Use
  Company Number: GB-MYLANLABS-2019M1062600

PATIENT
  Age: 45 Year
  Sex: Female
  Weight: 88 kg

DRUGS (12)
  1. ACETYLSALICYLIC ACID [Concomitant]
     Active Substance: ASPIRIN
     Dosage: 2 DOSAGE FORM, QD
     Dates: start: 20170425
  2. ZOLMITRIPTAN. [Concomitant]
     Active Substance: ZOLMITRIPTAN
     Dosage: 1 DOSAGE FORM, PRN
     Dates: start: 20170425
  3. FLUOXETINE [Concomitant]
     Active Substance: FLUOXETINE HYDROCHLORIDE
     Dosage: 1 DOSAGE FORM, QD
     Dates: start: 20181016, end: 20181115
  4. HYDROXOCOBALAMIN [Concomitant]
     Active Substance: HYDROXOCOBALAMIN
     Dosage: USE AS DIRECTED
     Dates: start: 20181220, end: 20181221
  5. ELLESTE-SOLO [Concomitant]
     Dosage: 1 DOSAGE FORM, QD
     Dates: start: 20170425
  6. MACROGOL [Concomitant]
     Active Substance: POLYETHYLENE GLYCOLS
     Dosage: 2 DOSAGE FORM, QD
     Dates: start: 20170425
  7. ARACHIS OIL [Concomitant]
     Dosage: 1 DOSAGE FORM, INSERT
     Dates: start: 20170425
  8. ESOMEPRAZOLE. [Concomitant]
     Active Substance: ESOMEPRAZOLE MAGNESIUM
     Dosage: 1 DOSAGE FORM, QD
     Dates: start: 20170425
  9. SIMVASTATIN. [Concomitant]
     Active Substance: SIMVASTATIN
     Dosage: 1 DOSAGE FROM AT NIGHT
     Dates: start: 20170425
  10. MODAFINIL. [Suspect]
     Active Substance: MODAFINIL
     Indication: PRODUCT USED FOR UNKNOWN INDICATION
     Dosage: 100 MILLIGRAM
     Dates: start: 20190114
  11. GABAPENTIN. [Concomitant]
     Active Substance: GABAPENTIN
     Dosage: 6 DOSAGE FORM, QD
     Dates: start: 20170613
  12. AMITRIPTYLINE HYDROCHLORIDE. [Concomitant]
     Active Substance: AMITRIPTYLINE HYDROCHLORIDE
     Dosage: 2 DOSAGE FORM NIGHT
     Dates: start: 20170425

REACTIONS (4)
  - Gastrointestinal disorder [Not Recovered/Not Resolved]
  - Palpitations [Not Recovered/Not Resolved]
  - Confusional state [Not Recovered/Not Resolved]
  - Headache [Not Recovered/Not Resolved]

NARRATIVE: CASE EVENT DATE: 20190114
